FAERS Safety Report 15170704 (Version 2)
Quarter: 2018Q4

REPORT INFORMATION
  Report Type: Spontaneous
  Country: IT (occurrence: IT)
  Receive Date: 20180720
  Receipt Date: 20181005
  Transmission Date: 20190204
  Serious: Yes (Other)
  Sender: FDA-Public Use
  Company Number: IT-SA-2018SA191701

PATIENT
  Age: 43 Year
  Sex: Female

DRUGS (3)
  1. LEMTRADA [Suspect]
     Active Substance: ALEMTUZUMAB
     Dosage: 12 MG, QCY
     Route: 042
     Dates: start: 20160418, end: 20160422
  2. EFEXOR [Concomitant]
     Active Substance: VENLAFAXINE HYDROCHLORIDE
     Dates: start: 20180301
  3. LEMTRADA [Suspect]
     Active Substance: ALEMTUZUMAB
     Dosage: 12 MG, QCY
     Route: 042
     Dates: start: 20170412, end: 20170414

REACTIONS (5)
  - Anti-thyroid antibody [Not Recovered/Not Resolved]
  - Hypothyroidism [Not Recovered/Not Resolved]
  - Anti-thyroid antibody positive [Not Recovered/Not Resolved]
  - Thyroxine increased [Not Recovered/Not Resolved]
  - Autoimmune thyroiditis [Not Recovered/Not Resolved]

NARRATIVE: CASE EVENT DATE: 20180308
